FAERS Safety Report 4735714-7 (Version None)
Quarter: 2005Q3

REPORT INFORMATION
  Report Type: 
  Country: None (occurrence: None)
  Receive Date: 20050802
  Receipt Date: 20050720
  Transmission Date: 20060218
  Serious: Yes (Other)
  Sender: FDA-Public Use
  Company Number: US-2005-014427

PATIENT
  Age: 87 Year
  Sex: Female
  Weight: 46.7 kg

DRUGS (1)
  1. CAMPATH [Suspect]
     Indication: CHRONIC LYMPHOCYTIC LEUKAEMIA STAGE 4
     Dosage: 10 OR 20 MG, TIW
     Dates: start: 20050519, end: 20050620

REACTIONS (2)
  - PERICARDIAL EFFUSION [None]
  - UPPER RESPIRATORY TRACT INFECTION [None]
